FAERS Safety Report 9686165 (Version 2)
Quarter: 2013Q4

REPORT INFORMATION
  Report Type: Report from Study
  Country: CO (occurrence: CO)
  Receive Date: 20131113
  Receipt Date: 20131118
  Transmission Date: 20140711
  Serious: Yes (Life-Threatening)
  Sender: FDA-Public Use
  Company Number: CO-ROCHE-1302961

PATIENT
  Age: 74 Year
  Sex: Male

DRUGS (11)
  1. LUCENTIS [Suspect]
     Indication: DIABETIC RETINOPATHY
     Route: 050
  2. SERTRALINE [Concomitant]
  3. INSULIN [Concomitant]
  4. FUROSEMIDE [Concomitant]
  5. OMEPRAZOLE [Concomitant]
  6. CARVEDILOL [Concomitant]
     Route: 065
  7. ASA [Concomitant]
  8. SPIRONOLACTONE [Concomitant]
  9. METFORMIN [Concomitant]
     Route: 065
  10. ATORVASTATIN [Concomitant]
  11. CARBAMAZEPINE [Concomitant]

REACTIONS (1)
  - Arteriosclerosis [Recovering/Resolving]
